FAERS Safety Report 9458089 (Version 1)
Quarter: 2013Q3

REPORT INFORMATION
  Report Type: Spontaneous
  Country: GB (occurrence: None)
  Receive Date: 20130812
  Receipt Date: 20130812
  Transmission Date: 20140515
  Serious: Yes (Other)
  Sender: FDA-Public Use
  Company Number: AUR-APL-2013-06392

PATIENT
  Age: 71 Year
  Sex: Male
  Weight: 94 kg

DRUGS (5)
  1. PIOGLITAZONE (PIOGLITAZONE) [Suspect]
     Indication: DIABETES MELLITUS
     Dates: start: 20100705
  2. CLOPIDOGREL (CLOPIDOGREL) [Concomitant]
  3. LISINOPRIL (LISINOPRIL) [Concomitant]
  4. SILDENAFIL (SILDENAFIL) [Concomitant]
  5. SIMVASTATIN (SIMVASTATIN) [Concomitant]

REACTIONS (2)
  - Herpes zoster [None]
  - Varicella [None]
